FAERS Safety Report 22071733 (Version 2)
Quarter: 2023Q2

REPORT INFORMATION
  Report Type: Report from Study
  Country: IL (occurrence: IL)
  Receive Date: 20230307
  Receipt Date: 20230511
  Transmission Date: 20230721
  Serious: Yes (Hospitalization)
  Sender: FDA-Public Use
  Company Number: IL-ABBVIE-4290448

PATIENT
  Age: 83 Year
  Sex: Female
  Weight: 63 kg

DRUGS (14)
  1. IBRUTINIB [Suspect]
     Active Substance: IBRUTINIB
     Indication: Richter^s syndrome
     Dosage: LAST DOSE PRIOR TO EVENT - 26-JAN-2023
     Route: 048
     Dates: start: 20220815, end: 20230127
  2. IBRUTINIB [Suspect]
     Active Substance: IBRUTINIB
     Indication: Richter^s syndrome
     Route: 048
     Dates: start: 20230127, end: 20230313
  3. LOSEC 20MG [Concomitant]
     Indication: Product used for unknown indication
     Dates: start: 20230127, end: 20230127
  4. VENETOCLAX [Suspect]
     Active Substance: VENETOCLAX
     Indication: Richter^s syndrome
     Dates: start: 20220905, end: 20230126
  5. VENETOCLAX [Suspect]
     Active Substance: VENETOCLAX
     Indication: Richter^s syndrome
     Route: 048
     Dates: start: 20230127, end: 20230313
  6. OBINUTUZUMAB [Concomitant]
     Active Substance: OBINUTUZUMAB
     Indication: Richter^s syndrome
     Dates: start: 20220815, end: 20230109
  7. FIDAXOMICIN [Concomitant]
     Active Substance: FIDAXOMICIN
     Indication: Product used for unknown indication
  8. LOTAN PLUS [Concomitant]
     Indication: Product used for unknown indication
     Dosage: 50MG/12.5MG
     Dates: start: 20230127, end: 20230313
  9. METFORMIN HYDROCHLORIDE [Concomitant]
     Active Substance: METFORMIN HYDROCHLORIDE
     Indication: Product used for unknown indication
     Dates: start: 20230127, end: 20230313
  10. Pramin [Concomitant]
     Indication: Product used for unknown indication
  11. Bondormin tab 0.25mg [Concomitant]
     Indication: Product used for unknown indication
     Route: 048
     Dates: start: 20230312, end: 20230313
  12. LAMIVUDINE [Concomitant]
     Active Substance: LAMIVUDINE
     Indication: Product used for unknown indication
     Route: 048
  13. AMLODIPINE MALEATE [Concomitant]
     Active Substance: AMLODIPINE MALEATE
     Indication: Product used for unknown indication
     Dates: start: 20230127, end: 20230313
  14. OMEPRAZOLE [Concomitant]
     Active Substance: OMEPRAZOLE
     Indication: Product used for unknown indication
     Dates: start: 20230127, end: 20230313

REACTIONS (5)
  - Colitis [Recovered/Resolved]
  - Pyrexia [Unknown]
  - Diarrhoea [Recovered/Resolved]
  - Asthenia [Recovered/Resolved]
  - Weight decreased [Recovered/Resolved]

NARRATIVE: CASE EVENT DATE: 20230127
